FAERS Safety Report 15724769 (Version 1)
Quarter: 2018Q4

REPORT INFORMATION
  Report Type: Spontaneous
  Country: US (occurrence: US)
  Receive Date: 20181214
  Receipt Date: 20181214
  Transmission Date: 20190205
  Serious: Yes (Other)
  Sender: FDA-Public Use
  Company Number: US-TEVA-2018-US-987145

PATIENT
  Sex: Female

DRUGS (1)
  1. COPAXONE [Suspect]
     Active Substance: GLATIRAMER ACETATE
     Dosage: STRENGTH UNKNOWN
     Route: 065

REACTIONS (7)
  - Blindness [Unknown]
  - Lyme disease [Unknown]
  - Wheelchair user [Unknown]
  - Multiple sclerosis [Unknown]
  - Bladder dysfunction [Unknown]
  - Osteoporosis [Unknown]
  - Quadriplegia [Unknown]
